FAERS Safety Report 7985816-7 (Version None)
Quarter: 2011Q4

REPORT INFORMATION
  Report Type: 
  Country: None (occurrence: None)
  Receive Date: 20111214
  Receipt Date: 20111130
  Transmission Date: 20120403
  Serious: Yes (Death, Life-Threatening, Hospitalization)
  Sender: FDA-Public Use
  Company Number: 2011MA017052

PATIENT
  Age: 72 Year
  Sex: Male
  Weight: 97.5234 kg

DRUGS (19)
  1. TOPROL-XL [Concomitant]
  2. SKELAXIN [Concomitant]
  3. ATIVAN [Concomitant]
  4. APAP TAB [Concomitant]
  5. MORPHINE [Concomitant]
  6. LOPID [Concomitant]
  7. ATROPINE [Concomitant]
  8. DILANTIN [Concomitant]
  9. METFORMIN HCL [Concomitant]
  10. OXYCODONE HCL [Concomitant]
  11. BENICAR [Concomitant]
  12. EPINEPHRINE [Concomitant]
  13. DIGOXIN [Suspect]
     Indication: CORONARY ARTERY DISEASE
     Dosage: 0.25 MG;QD;PO
     Route: 048
     Dates: start: 20060718, end: 20080131
  14. CRESTOR [Concomitant]
  15. DILTIAZEM HCL [Concomitant]
  16. MONOPRIL [Concomitant]
  17. GLIPIZIDE [Concomitant]
  18. ZETIA [Concomitant]
  19. LIDOCAINE [Concomitant]

REACTIONS (19)
  - ECONOMIC PROBLEM [None]
  - FAMILY STRESS [None]
  - CARDIAC ARREST [None]
  - CEREBROVASCULAR ACCIDENT [None]
  - SINUS TACHYCARDIA [None]
  - BUNDLE BRANCH BLOCK RIGHT [None]
  - UNEVALUABLE EVENT [None]
  - CAROTID ARTERY OCCLUSION [None]
  - MYOCARDIAL INFARCTION [None]
  - PUPIL FIXED [None]
  - FALL [None]
  - UNRESPONSIVE TO STIMULI [None]
  - DEPRESSED LEVEL OF CONSCIOUSNESS [None]
  - MULTIPLE INJURIES [None]
  - ARRHYTHMIA [None]
  - CONVULSION [None]
  - TREMOR [None]
  - SURGERY [None]
  - CARDIO-RESPIRATORY ARREST [None]
